FAERS Safety Report 9287401 (Version 3)
Quarter: 2013Q2

REPORT INFORMATION
  Report Type: Spontaneous
  Country: JP (occurrence: JP)
  Receive Date: 20130514
  Receipt Date: 20130607
  Transmission Date: 20140414
  Serious: Yes (Hospitalization)
  Sender: FDA-Public Use
  Company Number: JP-009507513-1305JPN006846

PATIENT
  Age: 36 Year
  Sex: Male
  Weight: 61 kg

DRUGS (7)
  1. PEGINTRON [Suspect]
     Indication: CHRONIC HEPATITIS C
     Dosage: 1.5 MICROGRAM PER KILOGRAM, QW
     Route: 058
     Dates: start: 20130205, end: 20130423
  2. REBETOL [Suspect]
     Indication: CHRONIC HEPATITIS C
     Dosage: 800 MG, QD
     Route: 048
     Dates: start: 20130205, end: 20130401
  3. REBETOL [Suspect]
     Dosage: 600 MG, QD
     Route: 048
     Dates: start: 20130402, end: 20130424
  4. TELAVIC [Suspect]
     Indication: CHRONIC HEPATITIS C
     Dosage: 2250MILLIGRAMS, QD
     Route: 048
     Dates: start: 20130205, end: 20130218
  5. TELAVIC [Suspect]
     Dosage: 1500 MG, UNK
     Route: 048
     Dates: start: 20130219, end: 20130422
  6. URSO [Concomitant]
     Indication: CHRONIC HEPATITIS C
     Dosage: FORMULATION:POR, 600MILLIGRAMS QD
     Route: 048
     Dates: start: 20111117
  7. ALLELOCK [Concomitant]
     Dosage: FORMULATION:POR,10MILLIGRAMS ,QD
     Route: 048
     Dates: start: 20111208

REACTIONS (1)
  - Stevens-Johnson syndrome [Recovered/Resolved]
